FAERS Safety Report 21979090 (Version 1)
Quarter: 2023Q1

REPORT INFORMATION
  Report Type: Spontaneous
  Country: US (occurrence: None)
  Receive Date: 20230209
  Receipt Date: 20230209
  Transmission Date: 20230417
  Serious: Yes (Death)
  Sender: FDA-Public Use
  Company Number: None

PATIENT
  Age: 56 Year
  Sex: Male

DRUGS (2)
  1. PHENYTOIN [Suspect]
     Active Substance: PHENYTOIN
  2. APIXABAN [Suspect]
     Active Substance: APIXABAN

REACTIONS (9)
  - Hypotension [None]
  - Product use issue [None]
  - Mental status changes [None]
  - Dialysis [None]
  - Anticonvulsant drug level above therapeutic [None]
  - Blood creatinine increased [None]
  - International normalised ratio increased [None]
  - Mouth haemorrhage [None]
  - Pulmonary embolism [None]

NARRATIVE: CASE EVENT DATE: 20221103
